FAERS Safety Report 4599455-1 (Version None)
Quarter: 2005Q1

REPORT INFORMATION
  Report Type: 
  Country: None (occurrence: None)
  Receive Date: 20050303
  Receipt Date: 20050211
  Transmission Date: 20050727
  Serious: Yes (Hospitalization, Other)
  Sender: FDA-Public Use
  Company Number: USA030433375

PATIENT
  Age: 46 Year
  Sex: Female
  Weight: 84 kg

DRUGS (7)
  1. FORTEO [Suspect]
     Indication: OSTEOPOROSIS
     Dosage: 20 UG/1 DAY
     Dates: start: 20040101
  2. HUMALOG [Suspect]
     Indication: DIABETES MELLITUS
     Dates: start: 19990101
  3. HUMULIN R [Suspect]
     Indication: DIABETES MELLITUS
     Dates: start: 20010101, end: 20021101
  4. HUMULIN L [Suspect]
     Indication: DIABETES MELLITUS
     Dates: start: 20010101, end: 20030301
  5. LANTUS [Concomitant]
  6. STEROIDS [Concomitant]
  7. CALTRATE + D [Concomitant]

REACTIONS (11)
  - ASEPTIC NECROSIS BONE [None]
  - BLOOD GLUCOSE INCREASED [None]
  - CATARACT [None]
  - INJECTION SITE HAEMORRHAGE [None]
  - OSTEOPOROSIS [None]
  - PHARMACEUTICAL PRODUCT COMPLAINT [None]
  - PNEUMONIA [None]
  - SPINAL FRACTURE [None]
  - THROMBOSIS [None]
  - VISUAL DISTURBANCE [None]
  - WEIGHT INCREASED [None]
